FAERS Safety Report 8799597 (Version 2)
Quarter: 2012Q4

REPORT INFORMATION
  Report Type: 
  Country: US (occurrence: US)
  Receive Date: 20120919
  Receipt Date: 20121026
  Transmission Date: 20130627
  Serious: Yes (Death)
  Sender: FDA-Public Use
  Company Number: US-PFIZER INC-2012227448

PATIENT
  Age: 74 Year
  Sex: Male
  Weight: 52.15 kg

DRUGS (2)
  1. ZOLOFT [Suspect]
     Indication: DEPRESSION
     Dosage: 50 mg, 1x/day
     Route: 048
     Dates: start: 20120822, end: 20120829
  2. ASACOL [Concomitant]
     Indication: CROHN^S DISEASE
     Dosage: 2400 mg, 1x/day (six tablets of 400mg), daily

REACTIONS (5)
  - Completed suicide [Fatal]
  - Pallor [Unknown]
  - Cold sweat [Unknown]
  - Blood pressure increased [Unknown]
  - Weight decreased [Unknown]
